FAERS Safety Report 4724373-5 (Version None)
Quarter: 2005Q3

REPORT INFORMATION
  Report Type: 
  Country: None (occurrence: None)
  Receive Date: 20050721
  Receipt Date: 20050714
  Transmission Date: 20060218
  Serious: Yes (Other)
  Sender: FDA-Public Use
  Company Number: HQWYE114319APR05

PATIENT
  Age: 65 Year
  Sex: Female

DRUGS (4)
  1. PANTOZOL (PANTOPRAZOLE, TABLET, DELAYED RELEASE) [Suspect]
     Indication: GASTROOESOPHAGEAL REFLUX DISEASE
     Dosage: 40 MG 2X PER 1 DAY ORAL; SEE IMAGE
     Route: 048
     Dates: start: 20050308, end: 20050312
  2. PANTOZOL (PANTOPRAZOLE, TABLET, DELAYED RELEASE) [Suspect]
     Indication: HELICOBACTER INFECTION
     Dosage: 40 MG 2X PER 1 DAY ORAL; SEE IMAGE
     Route: 048
     Dates: start: 20050308, end: 20050312
  3. AMOXICILLIN [Suspect]
     Indication: GASTROOESOPHAGEAL REFLUX DISEASE
     Dosage: 1000 MG 1X PER 2 DAY ORAL
     Route: 048
     Dates: start: 20050308, end: 20050312
  4. CLARITHROMYCIN (CLARITHORMYCIN, ) [Suspect]
     Indication: GASTROOESOPHAGEAL REFLUX DISEASE
     Dosage: 500 MG 2X PER 1 DAY ORAL
     Route: 048
     Dates: start: 20050308, end: 20050312

REACTIONS (6)
  - AGEUSIA [None]
  - ANGIONEUROTIC OEDEMA [None]
  - DYSGEUSIA [None]
  - DYSPNOEA [None]
  - PHARYNGEAL OEDEMA [None]
  - SWOLLEN TONGUE [None]
